FAERS Safety Report 16487594 (Version 1)
Quarter: 2019Q2

REPORT INFORMATION
  Report Type: Other
  Country: US (occurrence: US)
  Receive Date: 20190627
  Receipt Date: 20190627
  Transmission Date: 20190711
  Serious: No
  Sender: FDA-Public Use
  Company Number: US-AMNEAL PHARMACEUTICALS-2018AMN01084

PATIENT

DRUGS (4)
  1. ESTRADIOL. [Suspect]
     Active Substance: ESTRADIOL
     Indication: ATROPHIC VULVOVAGINITIS
     Dosage: 10 MCG, 2X/WEEK
     Route: 067
     Dates: start: 201801, end: 201811
  2. SYNTHROID [Concomitant]
     Active Substance: LEVOTHYROXINE SODIUM
     Indication: PRODUCT USED FOR UNKNOWN INDICATION
     Dosage: UNK
  3. ESTRADIOL. [Suspect]
     Active Substance: ESTRADIOL
     Indication: URINARY TRACT DISORDER
  4. COZAAR [Concomitant]
     Active Substance: LOSARTAN POTASSIUM
     Indication: PRODUCT USED FOR UNKNOWN INDICATION
     Dosage: UNK

REACTIONS (6)
  - Symptom recurrence [Recovering/Resolving]
  - Product solubility abnormal [Recovered/Resolved]
  - Product packaging issue [Unknown]
  - Product substitution issue [Recovered/Resolved]
  - Device difficult to use [Recovered/Resolved]
  - Drug ineffective [Unknown]

NARRATIVE: CASE EVENT DATE: 2018
